FAERS Safety Report 23751854 (Version 1)
Quarter: 2024Q2

REPORT INFORMATION
  Report Type: Spontaneous
  Country: CA (occurrence: CA)
  Receive Date: 20240417
  Receipt Date: 20240417
  Transmission Date: 20240716
  Serious: Yes (Life-Threatening, Hospitalization, Other)
  Sender: FDA-Public Use
  Company Number: CA-TEVA-VS-3181824

PATIENT
  Age: 44 Year
  Sex: Female

DRUGS (5)
  1. EPIRUBICIN HYDROCHLORIDE [Suspect]
     Active Substance: EPIRUBICIN HYDROCHLORIDE
     Indication: Invasive ductal breast carcinoma
     Dosage: TIME INTERVAL: CYCLICAL
     Route: 065
  2. PROCHLORPERAZINE [Suspect]
     Active Substance: PROCHLORPERAZINE
     Indication: Invasive ductal breast carcinoma
     Dosage: TIME INTERVAL: CYCLICAL: DOSAGE FORM: NOT SPECIFIED
     Route: 065
  3. CYCLOPHOSPHAMIDE [Suspect]
     Active Substance: CYCLOPHOSPHAMIDE
     Indication: Invasive ductal breast carcinoma
     Dosage: DOSAGE FORM: NOT SPECIFIED
     Route: 048
  4. DEXAMETHASONE ACETATE [Suspect]
     Active Substance: DEXAMETHASONE ACETATE
     Indication: Invasive ductal breast carcinoma
     Dosage: TIME INTERVAL: CYCLICAL
     Route: 048
  5. FLUOROURACIL [Suspect]
     Active Substance: FLUOROURACIL
     Indication: Invasive ductal breast carcinoma
     Dosage: TIME INTERVAL: CYCLICAL: DOSAGE FORM: NOT SPECIFIED
     Route: 042

REACTIONS (2)
  - Febrile neutropenia [Unknown]
  - Megacolon [Unknown]
